FAERS Safety Report 25541866 (Version 1)
Quarter: 2025Q3

REPORT INFORMATION
  Report Type: Report from Study
  Country: BR (occurrence: BR)
  Receive Date: 20250711
  Receipt Date: 20250711
  Transmission Date: 20251020
  Serious: Yes (Other)
  Sender: Y-MABS THERAPEUTICS
  Company Number: BR-Y-MABS THERAPEUTICS, INC.-ODC2025-BR-002105

PATIENT

DRUGS (1)
  1. NAXITAMAB [Suspect]
     Active Substance: NAXITAMAB
     Indication: Neuroblastoma
     Route: 042

REACTIONS (4)
  - Seizure [Recovered/Resolved]
  - Rash [Recovered/Resolved]
  - Pyrexia [Recovered/Resolved]
  - Pain [Recovered/Resolved]
